FAERS Safety Report 10815249 (Version 1)
Quarter: 2015Q1

REPORT INFORMATION
  Report Type: Report from Study
  Country: PH (occurrence: PH)
  Receive Date: 20150218
  Receipt Date: 20150218
  Transmission Date: 20150721
  Serious: Yes (Other)
  Sender: FDA-Public Use
  Company Number: PHHY2015PH015834

PATIENT
  Age: 16 Year
  Sex: Female
  Weight: 48.21 kg

DRUGS (2)
  1. CARBAMAZEPINE. [Suspect]
     Active Substance: CARBAMAZEPINE
     Indication: PRODUCT USED FOR UNKNOWN INDICATION
     Dosage: 200 MG, (8 TABLETS PER CLAY IN 3 /2 /3 CYCLE)
     Route: 065
  2. ENALAPRIL [Concomitant]
     Active Substance: ENALAPRIL
     Indication: MITRAL VALVE PROLAPSE
     Dosage: 1 DF, QD
     Route: 065
     Dates: start: 20140830

REACTIONS (13)
  - Gait disturbance [Unknown]
  - Somnolence [Unknown]
  - Motor dysfunction [Unknown]
  - Dizziness [Unknown]
  - Seizure [Unknown]
  - Toxicity to various agents [Unknown]
  - Eye disorder [Unknown]
  - Limb discomfort [Unknown]
  - Hemiparesis [Unknown]
  - Balance disorder [Unknown]
  - Dysarthria [Unknown]
  - Nausea [Unknown]
  - Nystagmus [Unknown]

NARRATIVE: CASE EVENT DATE: 20140829
